FAERS Safety Report 5871791-8 (Version None)
Quarter: 2008Q3

REPORT INFORMATION
  Report Type: 
  Country: None (occurrence: None)
  Receive Date: 20080904
  Receipt Date: 20080904
  Transmission Date: 20090109
  Serious: Yes (Hospitalization)
  Sender: FDA-Public Use
  Company Number: None

PATIENT
  Sex: Female
  Weight: 63.2 kg

DRUGS (8)
  1. CYCLOPHOSPHAMIDE [Suspect]
     Dosage: 1500 MG
  2. CYTARABINE [Suspect]
     Dosage: 920 MG
  3. DEXAMETHASONE [Suspect]
     Dosage: 210 MG
  4. DOXORUBICIN HYDROCHLORIDE [Suspect]
     Dosage: 114 MG
  5. METHOTREXATE [Suspect]
     Dosage: 45 MG
     Route: 037
  6. THIOGUANINE [Suspect]
     Dosage: 1280 MG
  7. VINCRISTINE SULFATE [Suspect]
     Dosage: 5 MG
  8. AMPHOTERCIN [Concomitant]

REACTIONS (8)
  - ASCITES [None]
  - CAECITIS [None]
  - HAEMODIALYSIS [None]
  - HEPATIC INFECTION FUNGAL [None]
  - LIVER ABSCESS [None]
  - NEUTROPENIA [None]
  - PLEURAL EFFUSION [None]
  - RENAL IMPAIRMENT [None]
